FAERS Safety Report 9788310 (Version 1)
Quarter: 2013Q4

REPORT INFORMATION
  Report Type: Spontaneous
  Country: US (occurrence: US)
  Receive Date: 20131230
  Receipt Date: 20131230
  Transmission Date: 20140711
  Serious: No
  Sender: FDA-Public Use
  Company Number: US-PFIZER INC-2013369192

PATIENT
  Sex: Female

DRUGS (1)
  1. ADVIL [Suspect]
     Dosage: UNK
     Dates: start: 201312

REACTIONS (5)
  - Local swelling [Unknown]
  - Rash [Unknown]
  - Pruritus generalised [Unknown]
  - Rash pruritic [Unknown]
  - Poor quality sleep [Unknown]
